FAERS Safety Report 10023606 (Version 2)
Quarter: 2022Q1

REPORT INFORMATION
  Report Type: Spontaneous
  Country: GB (occurrence: GB)
  Receive Date: 20140320
  Receipt Date: 20220324
  Transmission Date: 20220423
  Serious: Yes (Life-Threatening, Hospitalization)
  Sender: FDA-Public Use
  Company Number: None

PATIENT
  Age: 18 Year
  Sex: Female
  Weight: 60 kg

DRUGS (1)
  1. ACETAMINOPHEN [Suspect]
     Active Substance: ACETAMINOPHEN
     Indication: Product used for unknown indication
     Dosage: BETWEEN 16 TO 62 GRAMS
     Route: 065

REACTIONS (4)
  - Overdose [Unknown]
  - Acute hepatic failure [Unknown]
  - Liver abscess [Recovered/Resolved]
  - Abscess drainage [Unknown]
